FAERS Safety Report 6158775-X (Version None)
Quarter: 2009Q2

REPORT INFORMATION
  Report Type: 
  Country: None (occurrence: None)
  Receive Date: 20090417
  Receipt Date: 20090409
  Transmission Date: 20091009
  Serious: Yes (Hospitalization)
  Sender: FDA-Public Use
  Company Number: B0570207A

PATIENT
  Sex: Female
  Weight: 57 kg

DRUGS (4)
  1. LAPATINIB [Suspect]
     Dosage: 1250MG PER DAY
     Route: 048
     Dates: start: 20090401, end: 20090408
  2. DOCETAXEL [Suspect]
     Dosage: 360MG EVERY 3 WEEKS
     Route: 042
     Dates: start: 20090331, end: 20090331
  3. ONDANSETRON [Concomitant]
     Indication: THERAPEUTIC PROCEDURE
     Dates: start: 20090331
  4. DEXAMETHASONE TAB [Concomitant]
     Indication: THERAPEUTIC PROCEDURE
     Dates: start: 20090331

REACTIONS (1)
  - FEBRILE NEUTROPENIA [None]
